FAERS Safety Report 8113221-1 (Version None)
Quarter: 2012Q1

REPORT INFORMATION
  Report Type: 
  Country: None (occurrence: None)
  Receive Date: 20120203
  Receipt Date: 20120202
  Transmission Date: 20120608
  Serious: Yes (Death, Hospitalization, Other)
  Sender: FDA-Public Use
  Company Number: VE-PFIZER INC-2012022635

PATIENT
  Age: 85 Year
  Sex: Female

DRUGS (1)
  1. LIPITOR [Suspect]
     Dosage: UNK, ONCE DAILY
     Route: 048
     Dates: end: 20110101

REACTIONS (2)
  - MYOCARDIAL INFARCTION [None]
  - CEREBROVASCULAR ACCIDENT [None]
